FAERS Safety Report 16601952 (Version 3)
Quarter: 2020Q1

REPORT INFORMATION
  Report Type: Report from Study
  Country: US (occurrence: US)
  Receive Date: 20190719
  Receipt Date: 20200115
  Transmission Date: 20200409
  Serious: Yes (Hospitalization, Other)
  Sender: FDA-Public Use
  Company Number: US-AGIOS-1905US01186

PATIENT

DRUGS (1)
  1. TIBSOVO [Suspect]
     Active Substance: IVOSIDENIB
     Indication: ACUTE MYELOID LEUKAEMIA
     Dosage: 500 MILLIGRAM, QD, 250 MG TABLETS
     Route: 048
     Dates: start: 20181110

REACTIONS (5)
  - Hospitalisation [Unknown]
  - Cataract [Not Recovered/Not Resolved]
  - Hernia [Not Recovered/Not Resolved]
  - Muscle spasms [Recovered/Resolved]
  - Clostridium difficile infection [Not Recovered/Not Resolved]

NARRATIVE: CASE EVENT DATE: 2019
